FAERS Safety Report 8747791 (Version 9)
Quarter: 2013Q3

REPORT INFORMATION
  Report Type: Spontaneous
  Country: US (occurrence: US)
  Receive Date: 20120827
  Receipt Date: 20130712
  Transmission Date: 20140515
  Serious: Yes (Hospitalization, Disabling, Other)
  Sender: FDA-Public Use
  Company Number: US-009507513-1208USA007486

PATIENT
  Sex: Female
  Weight: 76.19 kg

DRUGS (5)
  1. FOSAMAX [Suspect]
     Indication: OSTEOPOROSIS PROPHYLAXIS
     Dosage: 10 MG, QD
     Route: 048
     Dates: start: 199512, end: 200109
  2. FOSAMAX [Suspect]
     Dosage: 70 MG, QW
     Route: 048
     Dates: start: 200110, end: 201003
  3. FOSAMAX PLUS D [Suspect]
     Indication: OSTEOPOROSIS PROPHYLAXIS
     Dosage: 70 MG/ 2800 IU QW
     Route: 048
     Dates: end: 201003
  4. ALENDRONATE SODIUM [Suspect]
     Dosage: 70 MG, UNK
     Route: 048
  5. ARTHROTEC [Concomitant]
     Indication: RHEUMATOID ARTHRITIS
     Dosage: UNK
     Dates: start: 2002

REACTIONS (21)
  - Exostosis [Unknown]
  - Arthroscopy [Unknown]
  - Back pain [Unknown]
  - Femur fracture [Not Recovered/Not Resolved]
  - Intramedullary rod insertion [Unknown]
  - Rib fracture [Unknown]
  - Femur fracture [Not Recovered/Not Resolved]
  - Fall [Unknown]
  - Osteoporosis [Not Recovered/Not Resolved]
  - Hypothyroidism [Unknown]
  - Periodontal operation [Unknown]
  - Oral surgery [Unknown]
  - Tooth extraction [Unknown]
  - Hypercholesterolaemia [Unknown]
  - Hand fracture [Unknown]
  - Spinal osteoarthritis [Unknown]
  - Lumbar spinal stenosis [Unknown]
  - Spondylolisthesis [Unknown]
  - Staphylococcal infection [Unknown]
  - Hypertension [Unknown]
  - Exostosis [Unknown]
